FAERS Safety Report 5328154-3 (Version None)
Quarter: 2007Q2

REPORT INFORMATION
  Report Type: 
  Country: None (occurrence: None)
  Receive Date: 20070514
  Receipt Date: 20070501
  Transmission Date: 20071010
  Serious: Yes (Other)
  Sender: FDA-Public Use
  Company Number: GXKR2007IN03987

PATIENT
  Age: 1 Year
  Sex: Female

DRUGS (1)
  1. CLOZAPINE [Suspect]
     Dosage: TRANSPLACENTAL; VIA LACTATION
     Route: 064

REACTIONS (4)
  - DRUG EXPOSURE DURING PREGNANCY [None]
  - DRUG EXPOSURE VIA BREAST MILK [None]
  - DYSPHEMIA [None]
  - SPEECH DISORDER DEVELOPMENTAL [None]
